FAERS Safety Report 6486789-9 (Version None)
Quarter: 2009Q4

REPORT INFORMATION
  Report Type: 
  Country: None (occurrence: None)
  Receive Date: 20091210
  Receipt Date: 20091208
  Transmission Date: 20100525
  Serious: Yes (Death)
  Sender: FDA-Public Use
  Company Number: PHHY2009JP54139

PATIENT
  Sex: Male

DRUGS (6)
  1. COMTAN CMT+TAB [Suspect]
     Indication: DRUG EFFECT DECREASED
     Dosage: 300 MG DAILY
     Route: 048
     Dates: start: 20090223
  2. PURSENNID [Concomitant]
     Dosage: 24 MG, UNK
     Route: 048
  3. CARBIDOPA AND LEVODOPA [Concomitant]
     Indication: PARKINSON'S DISEASE
     Dosage: 300 MG, UNK
     Route: 048
  4. SIFROL [Concomitant]
     Indication: PARKINSON'S DISEASE
     Dosage: 4.5 MG, UNK
     Route: 048
  5. SELEGILINE HYDROCHLORIDE [Concomitant]
     Indication: PARKINSON'S DISEASE
     Dosage: 2.5 MG, UNK
     Route: 048
  6. MILMAG [Concomitant]
     Dosage: 1050 MG, UNK
     Route: 048

REACTIONS (1)
  - DEATH [None]
